FAERS Safety Report 13484240 (Version 1)
Quarter: 2017Q2

REPORT INFORMATION
  Report Type: Spontaneous
  Country: ES (occurrence: ES)
  Receive Date: 20170425
  Receipt Date: 20170425
  Transmission Date: 20170830
  Serious: No
  Sender: FDA-Public Use
  Company Number: ES-LUPIN PHARMACEUTICALS INC.-2016-01317

PATIENT
  Age: 46 Year
  Sex: Female

DRUGS (3)
  1. MINOCYCLINE [Suspect]
     Active Substance: MINOCYCLINE\MINOCYCLINE HYDROCHLORIDE
     Indication: ARTHRITIS BACTERIAL
     Dosage: 100 MG,BID,
     Route: 065
     Dates: start: 2011
  2. PREDNISONE. [Concomitant]
     Active Substance: PREDNISONE
     Indication: ARTHRITIS BACTERIAL
     Dosage: UNK UNK,UNK,UNKNOWN
     Route: 065
     Dates: start: 2011
  3. DENOSUMAB [Concomitant]
     Active Substance: DENOSUMAB
     Indication: ARTHRITIS BACTERIAL
     Dosage: UNK UNK,UNK,UNKNOWN
     Route: 065
     Dates: start: 2011

REACTIONS (1)
  - Pigmentation disorder [Recovering/Resolving]
